FAERS Safety Report 10659603 (Version 1)
Quarter: 2014Q4

REPORT INFORMATION
  Report Type: Spontaneous
  Country: US (occurrence: US)
  Receive Date: 20141217
  Receipt Date: 20141217
  Transmission Date: 20150529
  Serious: No
  Sender: FDA-Public Use
  Company Number: US-GLAXOSMITHKLINE-US2014GSK036855

PATIENT
  Age: 57 Year
  Sex: Female

DRUGS (3)
  1. HIGH BLOOD PRESSURE TREATMENT - UNKNOWN [Concomitant]
  2. ADVAIR DISKUS [Suspect]
     Active Substance: FLUTICASONE PROPIONATE\SALMETEROL XINAFOATE
     Indication: ASTHMA
     Dosage: 1 PUFF(S), BID
     Route: 055
     Dates: end: 201408
  3. ACID REFLUX MEDICATION (ACID CONTROL NOS) [Concomitant]

REACTIONS (4)
  - Cough [Not Recovered/Not Resolved]
  - Malaise [Recovering/Resolving]
  - Emergency care examination [Unknown]
  - Oxygen saturation decreased [Recovering/Resolving]

NARRATIVE: CASE EVENT DATE: 201409
